FAERS Safety Report 10269608 (Version 2)
Quarter: 2014Q3

REPORT INFORMATION
  Report Type: Report from Study
  Country: US (occurrence: US)
  Receive Date: 20140701
  Receipt Date: 20140709
  Transmission Date: 20150326
  Serious: Yes (Death, Other)
  Sender: FDA-Public Use
  Company Number: US-ROCHE-1427554

PATIENT

DRUGS (2)
  1. ALTEPLASE [Suspect]
     Active Substance: ALTEPLASE
     Indication: VENOUS THROMBOSIS
     Dosage: CATHETER-DIRECTED, STARTING AT 0.05 MG/KG/H
     Route: 065
  2. ALTEPLASE [Suspect]
     Active Substance: ALTEPLASE
     Indication: VENA CAVA THROMBOSIS

REACTIONS (6)
  - Cardiac disorder [Fatal]
  - Thrombosis [Fatal]
  - Haematuria [Unknown]
  - Wound secretion [Unknown]
  - Catheter site haemorrhage [Recovered/Resolved]
  - Haemothorax [Unknown]

NARRATIVE: CASE EVENT DATE: 20121024
